FAERS Safety Report 7640817-3 (Version None)
Quarter: 2011Q3

REPORT INFORMATION
  Report Type: 
  Country: None (occurrence: None)
  Receive Date: 20110728
  Receipt Date: 20110526
  Transmission Date: 20111222
  Serious: No
  Sender: FDA-Public Use
  Company Number: US-MUTUAL PHARMACEUTICAL COMPANY, INC.-CLCY20110065

PATIENT
  Sex: Female
  Weight: 84.444 kg

DRUGS (6)
  1. COLCRYS [Suspect]
     Indication: GOUT
     Route: 048
     Dates: start: 20110523, end: 20110527
  2. DIOVAN HCT 160/12.5 MG [Concomitant]
     Indication: HYPERTENSION
     Route: 048
  3. FERROUS SULFATE TAB [Concomitant]
     Indication: ANAEMIA
     Route: 065
  4. ASPIRIN [Concomitant]
     Indication: PRODUCT USED FOR UNKNOWN INDICATION
     Route: 048
  5. LEVAQUIN [Suspect]
     Indication: INFECTION PROPHYLAXIS
     Route: 048
     Dates: start: 20110523, end: 20110501
  6. VERAPAMIL [Concomitant]
     Indication: HYPERTENSION
     Route: 048

REACTIONS (1)
  - DIARRHOEA [None]
